FAERS Safety Report 4998363-1 (Version None)
Quarter: 2006Q2

REPORT INFORMATION
  Report Type: 
  Country: None (occurrence: None)
  Receive Date: 20060510
  Receipt Date: 20060227
  Transmission Date: 20061013
  Serious: Yes (Hospitalization)
  Sender: FDA-Public Use
  Company Number: PHEH2006US02648

PATIENT
  Age: 73 Year
  Sex: Male
  Weight: 88.435 kg

DRUGS (11)
  1. ZETIA [Suspect]
     Dates: end: 20060116
  2. ZETIA [Suspect]
     Dates: start: 20060216, end: 20060201
  3. LISINOPRIL [Concomitant]
     Indication: HYPERTENSION
     Dosage: 20 MG, QD
  4. LESCOL XL [Suspect]
     Indication: BLOOD CHOLESTEROL INCREASED
     Dosage: 80 MG, QD
     Route: 048
     Dates: start: 20050701, end: 20060116
  5. LESCOL XL [Suspect]
     Dosage: 40 MG, QD
     Route: 048
     Dates: start: 20060201
  6. VITAMIN B-12 [Concomitant]
     Indication: BLOOD HOMOCYSTEINE INCREASED
  7. MULTIVITAMIN [Concomitant]
  8. FISH OIL [Concomitant]
  9. OMEGA 3 [Concomitant]
  10. ASPIRIN [Concomitant]
     Dosage: 325 MG, QD
  11. FIBERCON [Concomitant]
     Indication: GASTROINTESTINAL DISORDER

REACTIONS (11)
  - ASTHENIA [None]
  - BLOOD CREATINE PHOSPHOKINASE INCREASED [None]
  - BRONCHITIS [None]
  - BRONCHOPNEUMONIA [None]
  - CONFUSIONAL STATE [None]
  - DELIRIUM [None]
  - LOSS OF CONSCIOUSNESS [None]
  - MUSCLE DISORDER [None]
  - PYREXIA [None]
  - SYNCOPE [None]
  - UPPER RESPIRATORY TRACT INFECTION [None]
